FAERS Safety Report 11089724 (Version 4)
Quarter: 2016Q4

REPORT INFORMATION
  Report Type: Spontaneous
  Country: US (occurrence: US)
  Receive Date: 20150505
  Receipt Date: 20161209
  Transmission Date: 20170206
  Serious: Yes (Life-Threatening, Hospitalization)
  Sender: FDA-Public Use
  Company Number: US-BAYER-2015-185392

PATIENT
  Age: 28 Year
  Sex: Female
  Weight: 63.49 kg

DRUGS (2)
  1. MIRENA [Suspect]
     Active Substance: LEVONORGESTREL
     Indication: CONTRACEPTION
     Dosage: 20 MCG/24HR, CONT
     Route: 015
     Dates: start: 20120625, end: 20120709
  2. MIRENA [Suspect]
     Active Substance: LEVONORGESTREL

REACTIONS (18)
  - Dizziness [None]
  - Pain [None]
  - Emotional distress [None]
  - Uterine pain [None]
  - Gait disturbance [None]
  - Discomfort [None]
  - Device issue [None]
  - Abdominal pain lower [None]
  - General physical health deterioration [None]
  - Anhedonia [None]
  - Diarrhoea [None]
  - Pelvic pain [None]
  - Nausea [None]
  - Dysuria [None]
  - Uterine perforation [None]
  - Injury [None]
  - Anxiety [None]
  - Muscle spasms [None]

NARRATIVE: CASE EVENT DATE: 2012
